FAERS Safety Report 5088846-0 (Version None)
Quarter: 2006Q3

REPORT INFORMATION
  Report Type: 
  Country: None (occurrence: None)
  Receive Date: 20060825
  Receipt Date: 20060814
  Transmission Date: 20061208
  Serious: Yes (Death)
  Sender: FDA-Public Use
  Company Number: GB-ROCHE-459508

PATIENT
  Age: 49 Year
  Sex: Female

DRUGS (2)
  1. ALL-TRANS-RETINOIC ACID [Suspect]
     Route: 048
  2. CHEMOTHERAPY NOS [Concomitant]
     Dosage: PATIENT RECEIVED 4 COURSES

REACTIONS (1)
  - PLASMACYTOMA [None]
